FAERS Safety Report 8309380-8 (Version None)
Quarter: 2012Q2

REPORT INFORMATION
  Report Type: 
  Country: None (occurrence: None)
  Receive Date: 20120420
  Receipt Date: 20120412
  Transmission Date: 20120825
  Serious: Yes (Hospitalization)
  Sender: FDA-Public Use
  Company Number: 2012SP019442

PATIENT
  Age: 57 Year
  Sex: Male

DRUGS (6)
  1. PEGINTERFERON ALFA-2B [Suspect]
     Indication: HEPATITIS C
     Dates: start: 20111001
  2. EPOGEN [Concomitant]
  3. RIBAVIRIN [Suspect]
     Indication: HEPATITIS C
     Dates: start: 20111001
  4. PROPRANOLOL [Concomitant]
  5. OMEPRAZOLE [Concomitant]
  6. DIHYDROERGOTAMINE MESYLATE [Concomitant]

REACTIONS (5)
  - PYREXIA [None]
  - CHOLANGITIS ACUTE [None]
  - INTERSTITIAL LUNG DISEASE [None]
  - ABDOMINAL PAIN UPPER [None]
  - VOMITING [None]
